FAERS Safety Report 22155245 (Version 7)
Quarter: 2023Q2

REPORT INFORMATION
  Report Type: Spontaneous
  Country: US (occurrence: US)
  Receive Date: 20230330
  Receipt Date: 20230622
  Transmission Date: 20230722
  Serious: Yes (Hospitalization, Other)
  Sender: FDA-Public Use
  Company Number: US-UNITED THERAPEUTICS-UNT-2023-005811

PATIENT
  Sex: Female
  Weight: 61.224 kg

DRUGS (11)
  1. REMODULIN [Suspect]
     Active Substance: TREPROSTINIL
     Indication: Pulmonary arterial hypertension
     Dosage: 0.030 ?G/KG, CONTINUING (PRE-FILED WITH 2 ML/CASSETTE AT PUMP RATE 21 MCL/HOUR)
     Route: 058
     Dates: start: 202302
  2. REMODULIN [Suspect]
     Active Substance: TREPROSTINIL
     Dosage: UNK (DOSE INCREASED), CONTINUING
     Route: 058
     Dates: start: 20230226, end: 2023
  3. REMODULIN [Suspect]
     Active Substance: TREPROSTINIL
     Dosage: UNK (PUMP RATE 28 MCL/HR), CONTINUING
     Route: 058
     Dates: start: 2023, end: 2023
  4. REMODULIN [Suspect]
     Active Substance: TREPROSTINIL
     Dosage: UNK, CONTINUING (SELF-FILL WITH 3ML/CASSETTE WITH PUMP RATE 35MCL/HOUR)
     Route: 058
     Dates: start: 2023, end: 20230418
  5. REMODULIN [Suspect]
     Active Substance: TREPROSTINIL
     Dosage: UNK, CONTINUING (SELF-FILL WITH 3ML/CASSETTE WITH PUMP RATE 35MCL/HOUR)
     Route: 058
     Dates: start: 20230418, end: 2023
  6. REMODULIN [Suspect]
     Active Substance: TREPROSTINIL
     Dosage: 0.050 ?G/KG, CONTINUING (PRE-FILED WITH 3 ML/CASSETTE AT PUMP RATE 35 MCL/HOUR)
     Route: 058
     Dates: start: 2023
  7. REMODULIN [Suspect]
     Active Substance: TREPROSTINIL
     Dosage: UNK, CONTINUING
     Route: 058
     Dates: start: 20230202
  8. IBUPROFEN [Suspect]
     Active Substance: IBUPROFEN
     Indication: Pain
     Dosage: UNK
     Route: 065
  9. SILDENAFIL [Concomitant]
     Active Substance: SILDENAFIL
     Indication: Product used for unknown indication
     Dosage: UNK
     Route: 065
  10. OPSUMIT [Concomitant]
     Active Substance: MACITENTAN
     Indication: Product used for unknown indication
     Dosage: UNK
     Route: 065
  11. UPTRAVI [Concomitant]
     Active Substance: SELEXIPAG
     Indication: Product used for unknown indication
     Dosage: UNK
     Route: 065

REACTIONS (16)
  - Infusion site cellulitis [Unknown]
  - Infusion site erythema [Unknown]
  - Infusion site inflammation [Recovering/Resolving]
  - Infusion site infection [Unknown]
  - Pericardial effusion [Unknown]
  - Infusion site pruritus [Unknown]
  - Infusion site pain [Unknown]
  - Infusion site haemorrhage [Unknown]
  - Infusion site swelling [Unknown]
  - Infusion site warmth [Unknown]
  - Infusion site reaction [Unknown]
  - Therapy non-responder [Unknown]
  - Abdominal distension [Unknown]
  - Sensitive skin [Unknown]
  - Device dislocation [Recovered/Resolved]
  - Unintentional medical device removal [Unknown]

NARRATIVE: CASE EVENT DATE: 20230101
